FAERS Safety Report 10090230 (Version 2)
Quarter: 2014Q2

REPORT INFORMATION
  Report Type: Spontaneous
  Country: US (occurrence: US)
  Receive Date: 20140421
  Receipt Date: 20140424
  Transmission Date: 20141212
  Serious: Yes (Death, Life-Threatening, Hospitalization)
  Sender: FDA-Public Use
  Company Number: US-JNJFOC-20140413830

PATIENT
  Age: 66 Year
  Sex: Male
  Weight: 84.64 kg

DRUGS (18)
  1. XARELTO [Suspect]
     Indication: PULMONARY EMBOLISM
     Route: 048
     Dates: start: 201308, end: 201401
  2. XARELTO [Suspect]
     Indication: THROMBOSIS
     Route: 048
     Dates: start: 201308, end: 201401
  3. CARVEDILOL [Suspect]
     Indication: CARDIOMYOPATHY
     Route: 048
  4. ZOCOR [Concomitant]
     Route: 065
  5. VICODIN [Concomitant]
     Route: 065
  6. FISH OIL [Concomitant]
     Route: 065
  7. VITAMIN D3 [Concomitant]
     Route: 065
  8. LASIX [Concomitant]
     Route: 065
  9. ZINC [Concomitant]
     Route: 065
  10. PRILOSEC [Concomitant]
     Route: 065
  11. KCL [Concomitant]
     Route: 065
  12. PREDNISONE [Concomitant]
     Route: 065
  13. DETROL LA [Concomitant]
     Route: 065
  14. COZAAR [Concomitant]
     Route: 065
  15. ALLEGRA [Concomitant]
     Route: 065
  16. ARAVA [Concomitant]
     Route: 065
  17. BUTRANS [Concomitant]
     Route: 065
  18. ELAVIL [Concomitant]
     Route: 065

REACTIONS (3)
  - Cerebral haemorrhage [Fatal]
  - Subarachnoid haemorrhage [Fatal]
  - Hypertension [Unknown]
